FAERS Safety Report 20859637 (Version 1)
Quarter: 2022Q2

REPORT INFORMATION
  Report Type: Report from Study
  Country: KR (occurrence: KR)
  Receive Date: 20220523
  Receipt Date: 20220523
  Transmission Date: 20220721
  Serious: Yes (Hospitalization)
  Sender: FDA-Public Use
  Company Number: KR-Vifor (International) Inc.-VIT-2022-03462

PATIENT
  Age: 79 Year
  Sex: Male
  Weight: 63 kg

DRUGS (18)
  1. VELPHORO [Suspect]
     Active Substance: SUCROFERRIC OXYHYDROXIDE
     Indication: Chronic kidney disease
     Route: 048
     Dates: start: 20210630, end: 2021
  2. VELPHORO [Suspect]
     Active Substance: SUCROFERRIC OXYHYDROXIDE
     Route: 048
     Dates: start: 20210804
  3. MIRCERA [Suspect]
     Active Substance: METHOXY POLYETHYLENE GLYCOL-EPOETIN BETA
     Indication: Product used for unknown indication
     Dosage: 120G/0.3ML
     Dates: start: 20210630, end: 20210630
  4. MIRCERA [Suspect]
     Active Substance: METHOXY POLYETHYLENE GLYCOL-EPOETIN BETA
     Dosage: 50G/0.3ML
     Dates: start: 20210630, end: 20210630
  5. RENVELA [Concomitant]
     Active Substance: SEVELAMER CARBONATE
     Indication: Hyperphosphataemia
     Route: 048
     Dates: start: 20180730, end: 20210629
  6. CILOSTAZOL [Concomitant]
     Active Substance: CILOSTAZOL
     Indication: Hypertension
     Route: 048
     Dates: start: 20210503
  7. THRUPASS ODT [Concomitant]
     Indication: Benign prostatic hyperplasia
     Route: 048
     Dates: start: 20181121
  8. LIPITOR [Concomitant]
     Active Substance: ATORVASTATIN CALCIUM
     Indication: Hyperlipidaemia
     Route: 048
     Dates: start: 20160316
  9. FOLIC ACID [Concomitant]
     Active Substance: FOLIC ACID
     Indication: Prophylaxis
     Dosage: SINIL
     Route: 048
     Dates: start: 20201216
  10. CETIRIN [CETIRIZINE HYDROCHLORIDE] [Concomitant]
     Indication: Prophylaxis
     Route: 048
     Dates: start: 20201216
  11. PANTOPRAZOLE SODIUM [Concomitant]
     Active Substance: PANTOPRAZOLE SODIUM
     Indication: Prophylaxis
     Dosage: 1 AMPULE
     Route: 042
     Dates: start: 20210726, end: 20210726
  12. ASPIRIN [Concomitant]
     Active Substance: ASPIRIN
     Indication: Hypertension
     Dosage: BORYUNGBIO
     Route: 048
     Dates: start: 20210326
  13. NEBIVOLOL [Concomitant]
     Active Substance: NEBIVOLOL
     Indication: Hypertension
     Route: 048
     Dates: start: 20210630
  14. COZAAR [Concomitant]
     Active Substance: LOSARTAN POTASSIUM
     Indication: Hypertension
     Route: 048
     Dates: start: 20210326
  15. NEPHVITA [Concomitant]
     Indication: Prophylaxis
     Route: 048
     Dates: start: 20161221
  16. LIDOCAINE [Concomitant]
     Active Substance: LIDOCAINE
     Indication: Prophylaxis
     Dosage: 2% 5ML/A HUONS, 1 AMPULE
     Route: 042
     Dates: start: 20210726, end: 20210726
  17. METRYNAL [Concomitant]
     Indication: Prophylaxis
     Dosage: 1 BOTTLE
     Route: 042
     Dates: start: 20210727, end: 20210727
  18. CEFTRIAXONE SODIUM [Concomitant]
     Active Substance: CEFTRIAXONE SODIUM
     Indication: Prophylaxis
     Dosage: 1 VIAL
     Route: 042
     Dates: start: 20210727, end: 20210729

REACTIONS (5)
  - Hypokinesia [Recovered/Resolved]
  - Hypophagia [Recovered/Resolved]
  - Dizziness [Recovered/Resolved]
  - Asthenia [Recovered/Resolved]
  - Diarrhoea [Recovered/Resolved]

NARRATIVE: CASE EVENT DATE: 20210719
